FAERS Safety Report 25689922 (Version 1)
Quarter: 2025Q3

REPORT INFORMATION
  Report Type: Spontaneous
  Country: EU (occurrence: EU)
  Receive Date: 20250818
  Receipt Date: 20250818
  Transmission Date: 20251020
  Serious: Yes (Other)
  Sender: MYLAN
  Company Number: EU-MYLANLABS-2025M1068913

PATIENT
  Age: 78 Year
  Sex: Female

DRUGS (12)
  1. VERAPAMIL [Suspect]
     Active Substance: VERAPAMIL HYDROCHLORIDE
     Indication: Atrial tachycardia
  2. VERAPAMIL [Suspect]
     Active Substance: VERAPAMIL HYDROCHLORIDE
     Route: 065
  3. VERAPAMIL [Suspect]
     Active Substance: VERAPAMIL HYDROCHLORIDE
     Route: 065
  4. VERAPAMIL [Suspect]
     Active Substance: VERAPAMIL HYDROCHLORIDE
  5. PROPAFENONE [Suspect]
     Active Substance: PROPAFENONE
     Indication: Atrial tachycardia
  6. PROPAFENONE [Suspect]
     Active Substance: PROPAFENONE
     Route: 065
  7. PROPAFENONE [Suspect]
     Active Substance: PROPAFENONE
     Route: 065
  8. PROPAFENONE [Suspect]
     Active Substance: PROPAFENONE
  9. METOPROLOL [Suspect]
     Active Substance: METOPROLOL
     Indication: Atrial tachycardia
  10. METOPROLOL [Suspect]
     Active Substance: METOPROLOL
     Route: 065
  11. METOPROLOL [Suspect]
     Active Substance: METOPROLOL
     Route: 065
  12. METOPROLOL [Suspect]
     Active Substance: METOPROLOL

REACTIONS (1)
  - Drug ineffective [Unknown]
